FAERS Safety Report 4936396-1 (Version None)
Quarter: 2006Q1

REPORT INFORMATION
  Report Type: 
  Country: None (occurrence: None)
  Receive Date: 20060302
  Receipt Date: 20060208
  Transmission Date: 20060701
  Serious: Yes (Other)
  Sender: FDA-Public Use
  Company Number: US_0510122996

PATIENT
  Age: 67 Year
  Sex: Male
  Weight: 99.8 kg

DRUGS (5)
  1. ZYPREXA [Suspect]
     Indication: BIPOLAR DISORDER
     Dosage: SEE IMAGE
     Route: 048
     Dates: start: 20000328, end: 20020930
  2. WELLBUTRIN (BUPROPION HYDROCHLORIDE) ORAL DRUG [Concomitant]
  3. ALPRAZOLAM [Concomitant]
  4. PAXIL [Concomitant]
  5. SINEMET /NET/ (CARBIDOPA, LEVODOPA) [Concomitant]

REACTIONS (27)
  - ABDOMINAL PAIN LOWER [None]
  - ALCOHOL POISONING [None]
  - ALCOHOLISM [None]
  - ARTERIOSCLEROSIS [None]
  - BLOOD CHOLESTEROL INCREASED [None]
  - BLOOD TRIGLYCERIDES INCREASED [None]
  - BRONCHITIS [None]
  - CHEST PAIN [None]
  - CHOLECYSTITIS ACUTE [None]
  - CHRONIC OBSTRUCTIVE PULMONARY DISEASE [None]
  - CONDITION AGGRAVATED [None]
  - CONVULSION [None]
  - DIABETES MELLITUS NON-INSULIN-DEPENDENT [None]
  - DRUG LEVEL ABOVE THERAPEUTIC [None]
  - DYSPNOEA [None]
  - FLUID RETENTION [None]
  - GASTRIC DISORDER [None]
  - GLYCOSYLATED HAEMOGLOBIN INCREASED [None]
  - HIGH DENSITY LIPOPROTEIN DECREASED [None]
  - HYPERLIPIDAEMIA [None]
  - HYPERTENSION [None]
  - LOW DENSITY LIPOPROTEIN INCREASED [None]
  - NEUROPATHY PERIPHERAL [None]
  - OPISTHOTONUS [None]
  - TOOTH EXTRACTION [None]
  - TOTAL CHOLESTEROL/HDL RATIO DECREASED [None]
  - WEIGHT DECREASED [None]
